FAERS Safety Report 5210967-X (Version None)
Quarter: 2006Q4

REPORT INFORMATION
  Report Type: 
  Country: None (occurrence: None)
  Receive Date: 20061114
  Receipt Date: 20060821
  Transmission Date: 20070319
  Serious: Yes (Hospitalization)
  Sender: FDA-Public Use
  Company Number: ALK_0014_2006

PATIENT
  Age: 48 Year
  Sex: Male

DRUGS (7)
  1. VIVITROL [Suspect]
     Indication: ALCOHOLISM
     Dosage: 380 MG QW; IM
     Route: 030
     Dates: start: 20060728
  2. EFFEXOR [Concomitant]
  3. ATIVAN [Concomitant]
  4. MAVIK [Concomitant]
  5. MOBIC [Concomitant]
  6. FOLIC ACID [Concomitant]
  7. AMBIEN [Concomitant]

REACTIONS (2)
  - DEPRESSION [None]
  - SUICIDE ATTEMPT [None]
